FAERS Safety Report 8462399-9 (Version None)
Quarter: 2012Q2

REPORT INFORMATION
  Report Type: 
  Country: None (occurrence: None)
  Receive Date: 20120625
  Receipt Date: 20120618
  Transmission Date: 20120825
  Serious: Yes (Hospitalization)
  Sender: FDA-Public Use
  Company Number: US-BAYER-2012-061136

PATIENT
  Age: 20 Year
  Sex: Female

DRUGS (3)
  1. IBUPROFEN [Concomitant]
     Dosage: 800 MG, UNK
  2. LEVOTHYROXINE [Concomitant]
     Dosage: 125 ?G, UNK
  3. YASMIN [Suspect]
     Indication: MENORRHAGIA

REACTIONS (1)
  - DEEP VEIN THROMBOSIS [None]
